FAERS Safety Report 4465037-5 (Version None)
Quarter: 2004Q4

REPORT INFORMATION
  Report Type: 
  Country: None (occurrence: None)
  Receive Date: 20041004
  Receipt Date: 20040619
  Transmission Date: 20050328
  Serious: Yes (Other)
  Sender: FDA-Public Use
  Company Number: PHEH2004US06710

PATIENT
  Age: 21 Year
  Sex: Female
  Weight: 91 kg

DRUGS (4)
  1. ZELNORM [Suspect]
     Indication: IRRITABLE BOWEL SYNDROME
     Dosage: 6 MG, BID
     Route: 048
     Dates: start: 20040106, end: 20040526
  2. LEVOXYL [Concomitant]
     Indication: THYROID GLAND CANCER
     Dosage: 150 UNK, UNK
     Route: 048
  3. SINGULAIR [Concomitant]
     Indication: ASTHMA
     Dosage: 10 UNK, UNK
     Route: 048
  4. ORTHO EVRA [Concomitant]
     Indication: CONTRACEPTION
     Route: 062

REACTIONS (4)
  - ABDOMINAL TENDERNESS [None]
  - CHEST PAIN [None]
  - CHOLECYSTECTOMY [None]
  - CHOLELITHIASIS [None]
